FAERS Safety Report 5825345-X (Version None)
Quarter: 2008Q3

REPORT INFORMATION
  Report Type: 
  Country: None (occurrence: None)
  Receive Date: 20080722
  Receipt Date: 20080710
  Transmission Date: 20090109
  Serious: Yes (Hospitalization)
  Sender: FDA-Public Use
  Company Number: 2008AL003413

PATIENT
  Age: 75 Year
  Sex: Female
  Weight: 74.8435 kg

DRUGS (11)
  1. DIGOXIN [Suspect]
     Indication: ATRIAL FIBRILLATION
     Dosage: 0.125MG DAILY PO
     Route: 048
     Dates: start: 20040101
  2. DIOVAN [Concomitant]
  3. PREVACID [Concomitant]
  4. TORSEMIDE [Concomitant]
  5. DILTIAZEM HCL [Concomitant]
  6. POTASSIUM CHLORIDE [Concomitant]
  7. HYDROCODONE BITARTRATE [Concomitant]
  8. OMEPRAZOLE [Concomitant]
  9. ASPIRIN [Concomitant]
  10. RESTATSIS [Concomitant]
  11. SEREVENT [Concomitant]

REACTIONS (3)
  - DIARRHOEA [None]
  - DRUG LEVEL INCREASED [None]
  - PNEUMONIA [None]
